FAERS Safety Report 10261370 (Version 2)
Quarter: 2014Q2

REPORT INFORMATION
  Report Type: Report from Study
  Country: US (occurrence: US)
  Receive Date: 20140626
  Receipt Date: 20140626
  Transmission Date: 20141212
  Serious: Yes (Life-Threatening, Hospitalization, Other)
  Sender: FDA-Public Use
  Company Number: US-MYLANLABS-2014S1002658

PATIENT
  Age: 55 Year
  Sex: Male
  Weight: 75 kg

DRUGS (8)
  1. CLOZAPINE TABLETS [Suspect]
     Indication: SCHIZOAFFECTIVE DISORDER
     Route: 048
  2. ETOPOSIDE [Suspect]
     Indication: BURKITT^S LYMPHOMA
     Dates: start: 20140124
  3. RITUXIMAB [Suspect]
     Indication: BURKITT^S LYMPHOMA
     Dates: start: 20140124
  4. CYTARABINE [Suspect]
     Indication: BURKITT^S LYMPHOMA
     Dates: start: 20140124
  5. METHOTREXATE [Suspect]
     Indication: BURKITT^S LYMPHOMA
     Dates: start: 20140131
  6. IFOSFAMIDE [Suspect]
     Indication: BURKITT^S LYMPHOMA
     Dates: start: 20140124
  7. DOXORUBICIN [Suspect]
     Indication: BURKITT^S LYMPHOMA
     Dates: start: 20140123
  8. DOXORUBICIN [Concomitant]
     Dates: start: 20140123

REACTIONS (3)
  - Agranulocytosis [Recovered/Resolved]
  - Granulocytopenia [Recovered/Resolved]
  - Leukopenia [Recovered/Resolved]
